FAERS Safety Report 16011980 (Version 1)
Quarter: 2019Q1

REPORT INFORMATION
  Report Type: Spontaneous
  Country: US (occurrence: US)
  Receive Date: 20190130
  Receipt Date: 20190130
  Transmission Date: 20190418
  Serious: No
  Sender: FDA-Public Use
  Company Number: None

PATIENT
  Age: 67 Year
  Sex: Male

DRUGS (1)
  1. DAPTOMYCIN 500 FRESENIUS KABI USA [Suspect]
     Active Substance: DAPTOMYCIN
     Indication: CELLULITIS
     Route: 042
     Dates: start: 20190119

REACTIONS (3)
  - Vomiting [None]
  - Nausea [None]
  - Therapy cessation [None]

NARRATIVE: CASE EVENT DATE: 20190121
